FAERS Safety Report 5726369-3 (Version None)
Quarter: 2008Q2

REPORT INFORMATION
  Report Type: 
  Country: None (occurrence: None)
  Receive Date: 20080502
  Receipt Date: 20080425
  Transmission Date: 20081010
  Serious: Yes (Other)
  Sender: FDA-Public Use
  Company Number: JP-ASTRAZENECA-2008AP01316

PATIENT
  Age: 24568 Day
  Sex: Male

DRUGS (6)
  1. CRESTOR [Suspect]
     Indication: HYPERCHOLESTEROLAEMIA
     Route: 048
     Dates: start: 20060616
  2. GLUFAST [Concomitant]
     Indication: DIABETES MELLITUS
     Dosage: FREQUENCY UNKNOWN
     Route: 048
     Dates: start: 20051217, end: 20060920
  3. GLIMICRON [Concomitant]
     Indication: DIABETES MELLITUS
     Dosage: FREQUENCY UNKNOWN
     Route: 048
     Dates: start: 20060921, end: 20061129
  4. GLIMICRON [Concomitant]
     Dosage: FREQUENCY UNKNOWN
     Route: 048
     Dates: start: 20061130
  5. ASPIRIN [Concomitant]
     Indication: CEREBRAL INFARCTION
     Route: 048
  6. GLYSENNID [Concomitant]
     Indication: CONSTIPATION
     Route: 048

REACTIONS (1)
  - DIABETES MELLITUS INADEQUATE CONTROL [None]
